FAERS Safety Report 22634034 (Version 1)
Quarter: 2023Q2

REPORT INFORMATION
  Report Type: Spontaneous
  Country: CN (occurrence: CN)
  Receive Date: 20230623
  Receipt Date: 20230623
  Transmission Date: 20230722
  Serious: Yes (Hospitalization)
  Sender: FDA-Public Use
  Company Number: CN-drreddys-LIT/CHN/23/0167780

PATIENT
  Age: 72 Year
  Sex: Female

DRUGS (4)
  1. OLANZAPINE [Suspect]
     Active Substance: OLANZAPINE
     Indication: Antipsychotic therapy
     Route: 048
  2. CANDESARTAN [Concomitant]
     Active Substance: CANDESARTAN
     Indication: Hypertension
     Route: 048
  3. CANDESARTAN [Concomitant]
     Active Substance: CANDESARTAN
     Route: 048
  4. METOPROLOL TARTRATE [Concomitant]
     Active Substance: METOPROLOL TARTRATE
     Indication: Hypertension
     Route: 048

REACTIONS (1)
  - Deep vein thrombosis [Recovering/Resolving]

NARRATIVE: CASE EVENT DATE: 20220903
